FAERS Safety Report 5405101-7 (Version None)
Quarter: 2007Q3

REPORT INFORMATION
  Report Type: 
  Country: None (occurrence: None)
  Receive Date: 20070803
  Receipt Date: 20070725
  Transmission Date: 20080115
  Serious: Yes (Other)
  Sender: FDA-Public Use
  Company Number: US-AMGEN-STX232755

PATIENT
  Sex: Male
  Weight: 67.2 kg

DRUGS (2)
  1. ENBREL [Suspect]
     Indication: ANKYLOSING SPONDYLITIS
     Route: 058
     Dates: start: 20061101
  2. ALEVE [Concomitant]

REACTIONS (3)
  - EYE IRRITATION [None]
  - JOINT EFFUSION [None]
  - UVEITIS [None]
